FAERS Safety Report 19873759 (Version 1)
Quarter: 2021Q3

REPORT INFORMATION
  Report Type: Spontaneous
  Country: IN (occurrence: IN)
  Receive Date: 20210922
  Receipt Date: 20210922
  Transmission Date: 20211014
  Serious: Yes (Other)
  Sender: FDA-Public Use
  Company Number: IN-COOPERSURGICAL, INC.-IN-2021CPS002850

PATIENT
  Age: 45 Year
  Sex: Female

DRUGS (1)
  1. PARAGARD T 380A [Suspect]
     Active Substance: COPPER

REACTIONS (7)
  - Calculus bladder [Recovered/Resolved]
  - Cystitis klebsiella [Recovered/Resolved]
  - Urinary tract infection [Recovered/Resolved]
  - Normochromic normocytic anaemia [Recovered/Resolved]
  - Device dislocation [Recovered/Resolved]
  - Device use issue [Recovered/Resolved]
  - Uterine perforation [Recovered/Resolved]
